FAERS Safety Report 5375749-7 (Version None)
Quarter: 2007Q2

REPORT INFORMATION
  Report Type: 
  Country: None (occurrence: None)
  Receive Date: 20070628
  Receipt Date: 20070618
  Transmission Date: 20071010
  Serious: Yes (Hospitalization)
  Sender: FDA-Public Use
  Company Number: 2007BI012918

PATIENT
  Age: 56 Year
  Sex: Female
  Weight: 87.9978 kg

DRUGS (4)
  1. AVONEX [Suspect]
     Indication: MULTIPLE SCLEROSIS
     Dosage: 30 UG; QW; IM
     Route: 030
     Dates: start: 20050101
  2. BLOOD PRESSURE MEDICATION (NOS) [Concomitant]
  3. LUMIGAN [Concomitant]
  4. METHOTREXATE [Concomitant]

REACTIONS (6)
  - ASTHENIA [None]
  - BLOOD GLUCOSE INCREASED [None]
  - DIABETES MELLITUS [None]
  - POLLAKIURIA [None]
  - THIRST [None]
  - VISION BLURRED [None]
